FAERS Safety Report 22632615 (Version 1)
Quarter: 2023Q2

REPORT INFORMATION
  Report Type: Spontaneous
  Country: FR (occurrence: FR)
  Receive Date: 20230623
  Receipt Date: 20230623
  Transmission Date: 20230722
  Serious: Yes (Hospitalization)
  Sender: FDA-Public Use
  Company Number: FR-NOVOPROD-1080003

PATIENT
  Age: 79 Year
  Sex: Male

DRUGS (1)
  1. XULTOPHY 100/3.6 [Suspect]
     Active Substance: INSULIN DEGLUDEC\LIRAGLUTIDE
     Indication: Product used for unknown indication
     Dosage: 16 ARBITRARY UNITS(DOSE FREQUENCY WAS NOT REPORTED)
     Dates: start: 202305, end: 202305

REACTIONS (8)
  - Malnutrition [Not Recovered/Not Resolved]
  - Sarcopenia [Unknown]
  - Fall [Unknown]
  - Plantar fasciitis [Unknown]
  - Wound [Unknown]
  - Condition aggravated [Unknown]
  - Blood glucose fluctuation [Unknown]
  - Weight decreased [Unknown]
